FAERS Safety Report 5608199-6 (Version None)
Quarter: 2008Q1

REPORT INFORMATION
  Report Type: 
  Country: None (occurrence: None)
  Receive Date: 20080130
  Receipt Date: 20080122
  Transmission Date: 20080703
  Serious: Yes (Hospitalization)
  Sender: FDA-Public Use
  Company Number: ES-ROCHE-542529

PATIENT
  Age: 66 Year
  Sex: Male
  Weight: 64 kg

DRUGS (6)
  1. CAPECITABINE [Suspect]
     Dosage: FREQUENCY: DAILY/14 D.
     Route: 048
     Dates: start: 20070615, end: 20070914
  2. BEVACIZUMAB [Suspect]
     Dosage: DOSAGE FORM: VIAL.
     Route: 042
     Dates: start: 20070615, end: 20070914
  3. OXALIPLATIN [Suspect]
     Dosage: DOSAGE FORM: VIAL.
     Route: 042
     Dates: start: 20070615, end: 20070914
  4. ENALAPRIL [Concomitant]
  5. ALBUTEROL [Concomitant]
  6. OMEPRAZOLE [Concomitant]

REACTIONS (1)
  - MUCOSAL INFLAMMATION [None]
